FAERS Safety Report 17283521 (Version 4)
Quarter: 2020Q3

REPORT INFORMATION
  Report Type: Spontaneous
  Country: PT (occurrence: PT)
  Receive Date: 20200117
  Receipt Date: 20200707
  Transmission Date: 20201102
  Serious: Yes (Other)
  Sender: FDA-Public Use
  Company Number: NVSC2020PT009977

PATIENT
  Age: 59 Year
  Sex: Male

DRUGS (4)
  1. CEFTRIAXONE. [Suspect]
     Active Substance: CEFTRIAXONE
     Indication: NEUROSYPHILIS
     Dosage: 2 G
     Route: 042
  2. PENICILLIN G [Concomitant]
     Active Substance: PENICILLIN G
     Indication: NEUROSYPHILIS
     Dosage: UNK
     Route: 065
  3. LEVETIRACETAM. [Concomitant]
     Active Substance: LEVETIRACETAM
     Indication: PRODUCT USED FOR UNKNOWN INDICATION
     Dosage: UNK
     Route: 042
  4. LEVETIRACETAM. [Concomitant]
     Active Substance: LEVETIRACETAM
     Dosage: UNK
     Route: 048

REACTIONS (3)
  - Hepatotoxicity [Recovered/Resolved]
  - Off label use [Unknown]
  - Drug-induced liver injury [Recovered/Resolved]
